FAERS Safety Report 16100690 (Version 1)
Quarter: 2019Q1

REPORT INFORMATION
  Report Type: Spontaneous
  Country: US (occurrence: US)
  Receive Date: 20190219
  Receipt Date: 20190219
  Transmission Date: 20190418
  Serious: Yes (Hospitalization)
  Sender: FDA-Public Use
  Company Number: None

PATIENT
  Age: 51 Year
  Sex: Male

DRUGS (1)
  1. DABIGATRAN [Suspect]
     Active Substance: DABIGATRAN
     Indication: ATRIAL FIBRILLATION
     Route: 048
     Dates: start: 20181121, end: 20181207

REACTIONS (3)
  - Diarrhoea haemorrhagic [None]
  - Abdominal pain [None]
  - Gastric haemorrhage [None]

NARRATIVE: CASE EVENT DATE: 20181207
